FAERS Safety Report 6395931-X (Version None)
Quarter: 2009Q4

REPORT INFORMATION
  Report Type: 
  Country: None (occurrence: None)
  Receive Date: 20091009
  Receipt Date: 20090911
  Transmission Date: 20100525
  Serious: No
  Sender: FDA-Public Use
  Company Number: A0806926A

PATIENT
  Age: 66 Year
  Sex: Female

DRUGS (16)
  1. TYKERB [Suspect]
     Indication: BREAST CANCER
     Dosage: 4TAB PER DAY
     Route: 048
     Dates: start: 20090904, end: 20090910
  2. XOPENEX [Concomitant]
  3. SEREVENT [Concomitant]
  4. QVAR 40 [Concomitant]
  5. SPIRIVA [Concomitant]
  6. SINGULAIR [Concomitant]
  7. ALLEGRA [Concomitant]
  8. SPIRONOLACTONE [Concomitant]
  9. LANOXIN [Concomitant]
  10. POTASSIUM CL [Concomitant]
  11. METFORMIN HCL [Concomitant]
  12. RESTASIS [Concomitant]
     Route: 047
  13. AMBIEN [Concomitant]
  14. PERCOCET [Concomitant]
  15. ZOMETA [Concomitant]
  16. HERCEPTIN [Concomitant]

REACTIONS (5)
  - DECREASED APPETITE [None]
  - DIARRHOEA [None]
  - DRY MOUTH [None]
  - FATIGUE [None]
  - NAUSEA [None]
